FAERS Safety Report 8544034 (Version 4)
Quarter: 2013Q1

REPORT INFORMATION
  Report Type: Spontaneous
  Country: FR (occurrence: FR)
  Receive Date: 20120503
  Receipt Date: 20130115
  Transmission Date: 20140127
  Serious: Yes (Other)
  Sender: FDA-Public Use
  Company Number: FR-PFIZER INC-2012106758

PATIENT
  Age: 79 Year
  Sex: Female

DRUGS (2)
  1. CORDARONE [Suspect]
     Indication: ARRHYTHMIA
     Dosage: 400 MG, DAILY
     Route: 048
     Dates: start: 201112
  2. PREVISCAN [Concomitant]
     Dosage: UNK

REACTIONS (2)
  - Cerebellar ataxia [Recovered/Resolved]
  - Dizziness [Recovered/Resolved]
